FAERS Safety Report 4818382-5 (Version None)
Quarter: 2005Q4

REPORT INFORMATION
  Report Type: 
  Country: None (occurrence: None)
  Receive Date: 20051102
  Receipt Date: 20051024
  Transmission Date: 20060501
  Serious: Yes (Hospitalization)
  Sender: FDA-Public Use
  Company Number: PHRM2005FR02834

PATIENT
  Age: 59 Year
  Sex: Male

DRUGS (5)
  1. TEGRETOL [Suspect]
     Indication: EPILEPSY
     Dosage: 1200 MG, DAILY
     Route: 048
  2. PROPOXYPHENE 65 ACETAMINOPHEN COMPOUND CAP [Suspect]
     Route: 048
     Dates: start: 20050924, end: 20050929
  3. DEPAKENE [Concomitant]
     Indication: PARKINSON'S DISEASE
     Dosage: 2 G, DAILY
     Route: 048
  4. EPITOMAX [Concomitant]
     Indication: PARKINSON'S DISEASE
     Dosage: 4 DF, DAILY
     Route: 048
  5. URBANYL [Concomitant]
     Indication: PARKINSON'S DISEASE
     Dosage: 10 MG, DAILY
     Route: 048
     Dates: start: 20050301

REACTIONS (12)
  - CEREBELLAR SYNDROME [None]
  - COORDINATION ABNORMAL [None]
  - DRUG INTERACTION [None]
  - DRUG LEVEL INCREASED [None]
  - DYSARTHRIA [None]
  - DYSPHAGIA [None]
  - FRACTURE [None]
  - NAUSEA [None]
  - NYSTAGMUS [None]
  - OCULOGYRATION [None]
  - PAIN [None]
  - VOMITING [None]
